FAERS Safety Report 4424977-3 (Version None)
Quarter: 2004Q3

REPORT INFORMATION
  Report Type: 
  Country: None (occurrence: None)
  Receive Date: 20040809
  Receipt Date: 20040729
  Transmission Date: 20050211
  Serious: Yes (Other)
  Sender: FDA-Public Use
  Company Number: US-JNJFOC-20040800050

PATIENT
  Age: 53 Year
  Sex: Male

DRUGS (1)
  1. RISPERDAL [Suspect]
     Dosage: 5 MG, IN 1 DAY, ORAL
     Route: 048

REACTIONS (1)
  - RHABDOMYOLYSIS [None]
